FAERS Safety Report 14958093 (Version 1)
Quarter: 2018Q2

REPORT INFORMATION
  Report Type: Spontaneous
  Country: RU (occurrence: RU)
  Receive Date: 20180531
  Receipt Date: 20180531
  Transmission Date: 20180711
  Serious: Yes (Other)
  Sender: FDA-Public Use
  Company Number: RU-JNJFOC-20180540441

PATIENT
  Sex: Female

DRUGS (2)
  1. DABIGATRAN [Concomitant]
     Active Substance: DABIGATRAN
     Route: 065
  2. XARELTO [Suspect]
     Active Substance: RIVAROXABAN
     Indication: PRODUCT USED FOR UNKNOWN INDICATION
     Route: 048

REACTIONS (2)
  - Iron deficiency anaemia [Recovered/Resolved]
  - Colon neoplasm [Unknown]
